FAERS Safety Report 16023765 (Version 3)
Quarter: 2019Q2

REPORT INFORMATION
  Report Type: Spontaneous
  Country: US (occurrence: US)
  Receive Date: 20190301
  Receipt Date: 20190424
  Transmission Date: 20190711
  Serious: Yes (Other)
  Sender: FDA-Public Use
  Company Number: US-BAYER-2019-039001

PATIENT
  Age: 31 Year
  Sex: Female
  Weight: 89 kg

DRUGS (4)
  1. MIRENA [Suspect]
     Active Substance: LEVONORGESTREL
     Indication: CONTRACEPTION
  2. MIRENA [Suspect]
     Active Substance: LEVONORGESTREL
     Indication: GENITAL HAEMORRHAGE
  3. MIRENA [Suspect]
     Active Substance: LEVONORGESTREL
     Indication: CONTRACEPTION
     Dosage: 20 MCG/24HR, CONT
     Route: 015
  4. MIRENA [Suspect]
     Active Substance: LEVONORGESTREL
     Indication: GENITAL HAEMORRHAGE

REACTIONS (7)
  - Device use issue [None]
  - Embedded device [None]
  - Wrong technique in device usage process [None]
  - Device difficult to use [None]
  - Complication of device removal [None]
  - Drug ineffective for unapproved indication [None]
  - Device breakage [None]

NARRATIVE: CASE EVENT DATE: 20190220
